FAERS Safety Report 10006466 (Version 1)
Quarter: 2014Q1

REPORT INFORMATION
  Report Type: Spontaneous
  Country: US (occurrence: None)
  Receive Date: 20140312
  Receipt Date: 20140312
  Transmission Date: 20141002
  Serious: Yes (Other)
  Sender: FDA-Public Use
  Company Number: None

PATIENT
  Age: 48 Year
  Sex: Female
  Weight: 72.58 kg

DRUGS (1)
  1. WARFARIN [Suspect]
     Indication: DEEP VEIN THROMBOSIS

REACTIONS (7)
  - Dizziness [None]
  - Blood pressure decreased [None]
  - Asthenia [None]
  - Pollakiuria [None]
  - Chills [None]
  - Tremor [None]
  - Hypoaesthesia [None]
